FAERS Safety Report 5227007-9 (Version None)
Quarter: 2007Q1

REPORT INFORMATION
  Report Type: 
  Country: None (occurrence: None)
  Receive Date: 20070202
  Receipt Date: 20070124
  Transmission Date: 20070707
  Serious: Yes (Hospitalization)
  Sender: FDA-Public Use
  Company Number: NL-BRISTOL-MYERS SQUIBB COMPANY-12665626

PATIENT
  Age: 78 Year
  Sex: Female

DRUGS (3)
  1. IRBESARTAN [Suspect]
     Indication: CARDIAC FAILURE
     Dosage: DOSE: 75MG/DAILY 07-FEB-2004 UNTIL 16-FEB-2004 + 150MG/DAILY 17-FEB-2004 UNTIL 04-MAR-2004.
     Route: 048
     Dates: start: 20040305
  2. BLINDED: PLACEBO [Suspect]
     Indication: CARDIAC FAILURE
     Route: 048
     Dates: start: 20040207
  3. ANTIBIOTIC [Suspect]

REACTIONS (1)
  - CYSTITIS [None]
